FAERS Safety Report 9717444 (Version 1)
Quarter: 2013Q4

REPORT INFORMATION
  Report Type: Spontaneous
  Country: US (occurrence: US)
  Receive Date: 20131127
  Receipt Date: 20131127
  Transmission Date: 20140711
  Serious: No
  Sender: FDA-Public Use
  Company Number: US-GILEAD-2009-0019697

PATIENT
  Sex: Male
  Weight: 89.81 kg

DRUGS (9)
  1. LETAIRIS [Suspect]
     Indication: PULMONARY ARTERIAL HYPERTENSION
     Route: 048
     Dates: start: 20081212
  2. TYLENOL [Concomitant]
  3. ASPIRIN [Concomitant]
  4. LASIX [Concomitant]
  5. JANUVIA [Concomitant]
  6. PREDNISONE [Concomitant]
  7. HYTRIN [Concomitant]
  8. ZOCOR [Concomitant]
  9. DULCOLAX SS [Concomitant]

REACTIONS (2)
  - Headache [Not Recovered/Not Resolved]
  - Nasal congestion [Not Recovered/Not Resolved]
